FAERS Safety Report 5054696-4 (Version None)
Quarter: 2006Q2

REPORT INFORMATION
  Report Type: 
  Country: None (occurrence: None)
  Receive Date: 20060614
  Receipt Date: 20060217
  Transmission Date: 20061013
  Serious: No
  Sender: FDA-Public Use
  Company Number: US200602003857

PATIENT
  Age: 38 Year
  Sex: Male

DRUGS (1)
  1. CIALIS [Suspect]
     Dosage: SEE IMAGE
     Dates: start: 20050601

REACTIONS (3)
  - BRONCHITIS [None]
  - DYSPHAGIA [None]
  - PHARYNGITIS STREPTOCOCCAL [None]
